FAERS Safety Report 20885308 (Version 4)
Quarter: 2022Q2

REPORT INFORMATION
  Report Type: Report from Study
  Country: DE (occurrence: None)
  Receive Date: 20220527
  Receipt Date: 20220620
  Transmission Date: 20220721
  Serious: Yes (Hospitalization)
  Sender: FDA-Public Use
  Company Number: DE-ROCHE-3102176

PATIENT
  Sex: Female
  Weight: 36.6 kg

DRUGS (4)
  1. ATEZOLIZUMAB [Suspect]
     Active Substance: ATEZOLIZUMAB
     Indication: Bladder cancer
     Route: 041
     Dates: start: 20220518
  2. PANTOPRAZOLE SODIUM [Concomitant]
     Active Substance: PANTOPRAZOLE SODIUM
     Indication: Gastritis prophylaxis
     Route: 048
     Dates: start: 2021
  3. METAMIZOL [Concomitant]
     Active Substance: METAMIZOLE SODIUM
     Indication: Pain
     Route: 048
     Dates: start: 2021
  4. FURADANTIN [Concomitant]
     Active Substance: NITROFURANTOIN
     Indication: Infection prophylaxis
     Route: 048
     Dates: start: 2021

REACTIONS (1)
  - Lymphocele [Recovered/Resolved]
